FAERS Safety Report 8974685 (Version 1)
Quarter: 2012Q4

REPORT INFORMATION
  Report Type: 
  Country: FR (occurrence: FR)
  Receive Date: 20121220
  Receipt Date: 20121220
  Transmission Date: 20130627
  Serious: Yes (Hospitalization)
  Sender: FDA-Public Use
  Company Number: FR-ASTRAZENECA-2012SE92958

PATIENT
  Age: 87 Year
  Sex: Male

DRUGS (11)
  1. SYMBICORT [Suspect]
     Dosage: 320/9 UG PER DOSE, ONE INHALALTION TWICE A DAY
     Route: 055
     Dates: end: 20121030
  2. SEROPLEX [Suspect]
     Indication: DEPRESSION
     Route: 048
     Dates: end: 20121025
  3. SEROPLEX [Suspect]
     Indication: DEPRESSION
     Route: 048
  4. IXPRIM [Suspect]
     Route: 048
     Dates: end: 20121025
  5. COAPROVEL [Suspect]
     Indication: HYPERTENSION
     Route: 048
     Dates: end: 20121025
  6. COAPROVEL [Suspect]
     Indication: HYPERTENSION
     Route: 048
     Dates: start: 20121030
  7. XANAX [Concomitant]
  8. IMOVANE [Concomitant]
  9. ABIRATERONE [Concomitant]
  10. DOLIPRANE [Concomitant]
  11. TRAVATAN [Concomitant]

REACTIONS (2)
  - Dehydration [Recovered/Resolved]
  - Hypotension [Recovered/Resolved]
